FAERS Safety Report 5468374-0 (Version None)
Quarter: 2007Q3

REPORT INFORMATION
  Report Type: 
  Country: None (occurrence: None)
  Receive Date: 20070926
  Receipt Date: 20070919
  Transmission Date: 20080115
  Serious: Yes (Death)
  Sender: FDA-Public Use
  Company Number: B0488563A

PATIENT
  Age: 73 Year
  Sex: Male

DRUGS (3)
  1. AUGMENTIN '125' [Suspect]
     Indication: BLADDER NEOPLASM
     Dosage: 4MG SINGLE DOSE
     Route: 042
  2. CEFOPERAZONE SODIUM [Concomitant]
  3. SULBACTAM [Concomitant]

REACTIONS (1)
  - TOXIC EPIDERMAL NECROLYSIS [None]
